FAERS Safety Report 8913146 (Version 1)
Quarter: 2012Q4

REPORT INFORMATION
  Report Type: Report from Study
  Country: HK (occurrence: HK)
  Receive Date: 20121119
  Receipt Date: 20121119
  Transmission Date: 20130627
  Serious: Yes (Death, Hospitalization)
  Sender: FDA-Public Use
  Company Number: HK-BAYER-2012-104862

PATIENT
  Age: 65 Year
  Sex: Female
  Weight: 58.6 kg

DRUGS (12)
  1. REGORAFENIB [Suspect]
     Indication: METASTATIC COLORECTAL CANCER
     Dosage: 160 mg, QD
     Route: 048
     Dates: start: 20120926, end: 20121003
  2. THYROXINE [Concomitant]
     Indication: HYPOTHYROIDISM
     Dosage: 100 ?g, QD
     Route: 048
     Dates: start: 20120926
  3. TRAMADOL [Concomitant]
     Indication: ABDOMINAL PAIN
     Dosage: 400 mg, QD
     Route: 048
  4. TRAMADOL [Concomitant]
     Indication: RIGHT UPPER QUADRANT PAIN
     Dosage: UNK
  5. BISACODYL [Concomitant]
     Route: 054
  6. LACTULOSE [Concomitant]
     Indication: CONSTIPATION
     Dosage: 30 ml, QD
     Route: 048
     Dates: start: 20121004
  7. ENZYPLEX [Concomitant]
     Indication: UPPER ABDOMINAL DISCOMFORT
  8. MORPHINE [Concomitant]
     Indication: RIGHT UPPER QUADRANT PAIN
     Dosage: PRN
  9. MAXOLON [Concomitant]
     Indication: NAUSEA
  10. LAXATIVES [Concomitant]
     Indication: CONSTIPATION
  11. NACL [Concomitant]
     Indication: SODIUM REPLACEMENT
  12. ZINNAT [Concomitant]
     Indication: UTI

REACTIONS (2)
  - Blood bilirubin increased [Unknown]
  - Death [Fatal]
